FAERS Safety Report 4690461-5 (Version None)
Quarter: 2005Q2

REPORT INFORMATION
  Report Type: 
  Country: None (occurrence: None)
  Receive Date: 20050615
  Receipt Date: 20050524
  Transmission Date: 20051028
  Serious: Yes (Hospitalization)
  Sender: FDA-Public Use
  Company Number: US-BRISTOL-MYERS SQUIBB COMPANY-12980389

PATIENT
  Age: 44 Year
  Sex: Male
  Weight: 102 kg

DRUGS (10)
  1. CISPLATIN [Suspect]
     Indication: PLEURAL MESOTHELIOMA
     Route: 042
     Dates: start: 20050502, end: 20050502
  2. PEMETREXED DISODIUM [Suspect]
     Indication: PLEURAL MESOTHELIOMA
     Route: 042
     Dates: start: 20050502, end: 20050502
  3. PROZAC [Concomitant]
     Indication: PROPHYLAXIS
     Dates: start: 20050101
  4. FOLIC ACID [Concomitant]
     Dates: start: 20050218
  5. VITAMIN B-12 [Concomitant]
     Dates: start: 20050421, end: 20050421
  6. DECADRON [Concomitant]
     Dates: start: 20050501
  7. WELLBUTRIN [Concomitant]
     Indication: EX-SMOKER
     Dates: start: 20040901
  8. CENTRUM [Concomitant]
     Indication: VITAMIN SUPPLEMENTATION
     Dates: start: 19950101
  9. ADVAIR [Concomitant]
     Indication: DYSPNOEA
     Dates: start: 19940101
  10. CHONDROITIN [Concomitant]
     Indication: JOINT CREPITATION
     Dates: start: 20050101

REACTIONS (2)
  - DYSPNOEA [None]
  - SINUS BRADYCARDIA [None]
